FAERS Safety Report 8478625-6 (Version None)
Quarter: 2012Q2

REPORT INFORMATION
  Report Type: 
  Country: None (occurrence: None)
  Receive Date: 20120629
  Receipt Date: 20120620
  Transmission Date: 20120825
  Serious: Yes (Disabling, Other)
  Sender: FDA-Public Use
  Company Number: US-PFIZER INC-2012147612

PATIENT
  Sex: Female
  Weight: 87 kg

DRUGS (7)
  1. LEVOXYL [Concomitant]
     Indication: HYPOTHYROIDISM
     Dosage: 100 MG, 1X/DAY
     Route: 048
     Dates: start: 20120307
  2. AXITINIB [Suspect]
     Dosage: 5 MG, 2X/DAY
     Dates: start: 20120209, end: 20120404
  3. AXITINIB [Suspect]
     Dosage: 10 MG, 2X/DAY
     Dates: start: 20120502, end: 20120524
  4. LISINOPRIL [Concomitant]
     Indication: HYPERTENSION
     Dosage: 20 MG, 1X/DAY
     Route: 048
     Dates: start: 20120502
  5. HYDROCORTISONE [Concomitant]
     Indication: ADRENAL INSUFFICIENCY
     Dosage: 15 MG AM AND 7.5 MG PM DAILY
     Route: 048
     Dates: start: 20100101
  6. AXITINIB [Suspect]
     Dosage: 7 MG, 2X/DAY
     Dates: start: 20120404, end: 20120502
  7. PYRIDOXINE [Concomitant]
     Indication: NEUROPATHY PERIPHERAL
     Dosage: 50 MG, 1X/DAY
     Route: 048
     Dates: start: 20120227

REACTIONS (2)
  - HYPERTENSION [None]
  - RHEUMATOID ARTHRITIS [None]
